FAERS Safety Report 22693260 (Version 5)
Quarter: 2023Q4

REPORT INFORMATION
  Report Type: Spontaneous
  Country: DE (occurrence: DE)
  Receive Date: 20230711
  Receipt Date: 20231026
  Transmission Date: 20240110
  Serious: Yes (Hospitalization, Other)
  Sender: FDA-Public Use
  Company Number: DE-MODERNATX, INC.-MOD-2023-730073

PATIENT
  Age: 41 Year
  Sex: Female
  Weight: 75 kg

DRUGS (3)
  1. STELARA [Suspect]
     Active Substance: USTEKINUMAB
     Indication: Product used for unknown indication
     Dosage: UNK
     Route: 058
     Dates: start: 202106
  2. SPIKEVAX (ELASOMERAN) [Suspect]
     Active Substance: ELASOMERAN
     Indication: COVID-19 prophylaxis
     Dosage: DOSE 2
     Route: 065
     Dates: start: 20210609
  3. SPIKEVAX (ELASOMERAN) [Suspect]
     Active Substance: ELASOMERAN
     Dosage: DOSE 1
     Route: 065
     Dates: start: 20210428

REACTIONS (22)
  - Glaucoma [Unknown]
  - Hyperthyroidism [Unknown]
  - Immune thrombocytopenia [Unknown]
  - Systemic lupus erythematosus [Unknown]
  - Mitral valve incompetence [Unknown]
  - Neuropathy peripheral [Unknown]
  - Disturbance in attention [Unknown]
  - Fatigue [Unknown]
  - Sleep disorder [Unknown]
  - Chills [Unknown]
  - Social avoidant behaviour [Unknown]
  - Decreased appetite [Unknown]
  - Visual field defect [Unknown]
  - Inappropriate schedule of product administration [Unknown]
  - Social anxiety disorder [Unknown]
  - Psoriasis [Unknown]
  - Hypertension [Unknown]
  - Hyperkeratosis [Unknown]
  - Palpitations [Unknown]
  - Tinea pedis [Unknown]
  - Conjunctivitis allergic [Unknown]
  - Haemorrhoids [Unknown]

NARRATIVE: CASE EVENT DATE: 20210609
